FAERS Safety Report 18612478 (Version 2)
Quarter: 2020Q4

REPORT INFORMATION
  Report Type: Spontaneous
  Country: CA (occurrence: CA)
  Receive Date: 20201214
  Receipt Date: 20201222
  Transmission Date: 20210114
  Serious: Yes (Other)
  Sender: FDA-Public Use
  Company Number: CA-JNJFOC-20201218993

PATIENT
  Age: 53 Year
  Sex: Female

DRUGS (2)
  1. TOPAMAX [Suspect]
     Active Substance: TOPIRAMATE
     Indication: MIGRAINE
     Route: 048
  2. AIMOVIG [Suspect]
     Active Substance: ERENUMAB-AOOE
     Indication: MIGRAINE
     Route: 058

REACTIONS (6)
  - Seizure [Unknown]
  - Drug ineffective [Unknown]
  - Brain neoplasm [Unknown]
  - Ear congestion [Unknown]
  - Malaise [Unknown]
  - Neoplasm malignant [Unknown]
